FAERS Safety Report 9647873 (Version 1)
Quarter: 2013Q4

REPORT INFORMATION
  Report Type: Spontaneous
  Country: US (occurrence: US)
  Receive Date: 20131028
  Receipt Date: 20131028
  Transmission Date: 20140711
  Serious: No
  Sender: FDA-Public Use
  Company Number: US-PFIZER INC-2013307623

PATIENT
  Sex: Female

DRUGS (3)
  1. CELEBREX [Suspect]
     Indication: BACK PAIN
     Dosage: 200 MG, DAILY (AT 8 AM)
     Dates: start: 20131025
  2. ADVIL [Suspect]
     Indication: BACK PAIN
     Dosage: UNK,  TWO TIMES A DAY
     Dates: end: 201310
  3. TYLENOL [Suspect]
     Indication: BACK PAIN
     Dosage: UNK
     Dates: end: 201310

REACTIONS (1)
  - Drug ineffective [Unknown]
